FAERS Safety Report 10983709 (Version 3)
Quarter: 2015Q2

REPORT INFORMATION
  Report Type: Report from Study
  Country: US (occurrence: US)
  Receive Date: 20150403
  Receipt Date: 20150423
  Transmission Date: 20150821
  Serious: Yes (Death)
  Sender: FDA-Public Use
  Company Number: US-PFIZER INC-2015114652

PATIENT
  Age: 76 Year
  Sex: Female
  Weight: 55 kg

DRUGS (3)
  1. PALBOCICLIB [Suspect]
     Active Substance: PALBOCICLIB
     Indication: SQUAMOUS CELL CARCINOMA OF LUNG
     Dosage: 125 MG, CYCLIC DAILY (ON DAYS 1-21 IN A 28 DAYS CYCLE)
     Route: 048
     Dates: start: 20150316
  2. BUDESONIDE. [Concomitant]
     Active Substance: BUDESONIDE
     Dosage: UNK
  3. ALBUTEROL. [Concomitant]
     Active Substance: ALBUTEROL
     Dosage: UNK

REACTIONS (1)
  - Haemoptysis [Fatal]

NARRATIVE: CASE EVENT DATE: 20150318
